FAERS Safety Report 24270755 (Version 1)
Quarter: 2024Q3

REPORT INFORMATION
  Report Type: Spontaneous
  Country: BR (occurrence: BR)
  Receive Date: 20240831
  Receipt Date: 20240831
  Transmission Date: 20241016
  Serious: Yes (Other)
  Sender: ABBVIE
  Company Number: BR-ABBOTT-2024A-1387069

PATIENT
  Sex: Male
  Weight: 90 kg

DRUGS (1)
  1. DEPAKOTE [Suspect]
     Active Substance: DIVALPROEX SODIUM
     Indication: Product used for unknown indication
     Dosage: ONCE A DAY IN THE MORNING?ER 500MG
     Route: 048

REACTIONS (5)
  - Syncope [Recovered/Resolved]
  - Blood pressure decreased [Unknown]
  - Fatigue [Recovering/Resolving]
  - Syncope [Recovered/Resolved]
  - Headache [Recovering/Resolving]

NARRATIVE: CASE EVENT DATE: 20230401
